FAERS Safety Report 5564869-X (Version None)
Quarter: 2007Q4

REPORT INFORMATION
  Report Type: 
  Country: None (occurrence: None)
  Receive Date: 20071212
  Receipt Date: 20071204
  Transmission Date: 20080405
  Serious: Yes (Hospitalization)
  Sender: FDA-Public Use
  Company Number: 229-C5013-07081217

PATIENT
  Age: 76 Year
  Sex: Female

DRUGS (8)
  1. CC-5013 (LENALIDOMIDE) (CAPSULES) [Suspect]
     Indication: MULTIPLE MYELOMA
     Dosage: 25 MG, DAILY, ORAL
     Route: 048
     Dates: start: 20070509, end: 20070821
  2. DEXAMETHASONE TAB [Suspect]
     Indication: MULTIPLE MYELOMA
     Dosage: 20 MG, EVERY 2/52,
     Dates: start: 20070509, end: 20070831
  3. LANSOPRAZOLE [Concomitant]
  4. FRUMIL (FRUMIL) [Concomitant]
  5. MAXALAN (METOCLOPRAMIDE HYDROCHLORIDE) [Concomitant]
  6. MYCOSTATIN [Concomitant]
  7. CORDOSYL (CHLORHEXIDINE GLUCONATE) [Concomitant]
  8. TRANSFUSION (BLOOD TRANSFUSION, AUXILLIARY PRODCTS) [Concomitant]

REACTIONS (11)
  - ANAEMIA [None]
  - BLOOD CHLORIDE DECREASED [None]
  - BLOOD CREATININE INCREASED [None]
  - BLOOD POTASSIUM DECREASED [None]
  - CONFUSIONAL STATE [None]
  - DEHYDRATION [None]
  - DYSPHASIA [None]
  - FATIGUE [None]
  - HYPONATRAEMIA [None]
  - NEUTROPENIA [None]
  - SEPSIS [None]
